FAERS Safety Report 6241982-5 (Version None)
Quarter: 2009Q2

REPORT INFORMATION
  Report Type: 
  Country: None (occurrence: None)
  Receive Date: 20090618
  Receipt Date: 20090608
  Transmission Date: 20091009
  Serious: No
  Sender: FDA-Public Use
  Company Number: AEUSA200900119

PATIENT
  Age: 9 Year
  Sex: Female
  Weight: 31.7518 kg

DRUGS (7)
  1. IMMUNE GLOBULIN (HUMAN) [Suspect]
     Indication: IMMUNODEFICIENCY COMMON VARIABLE
     Dosage: 10 GM; QM; IV
     Route: 042
     Dates: start: 20040101, end: 20090402
  2. IMMUNE GLOBULIN (HUMAN) [Suspect]
  3. IMMUNE GLOBULIN (HUMAN) [Suspect]
  4. IMMUNE GLOBULIN (HUMAN) [Suspect]
  5. IMMUNE GLOBULIN (HUMAN) [Suspect]
  6. TOPAMAX [Concomitant]
  7. OXYBUTYNIN CHLORIDE [Concomitant]

REACTIONS (5)
  - ALANINE AMINOTRANSFERASE DECREASED [None]
  - ANTI-HBC IGG ANTIBODY POSITIVE [None]
  - FATIGUE [None]
  - HEPATITIS A ANTIBODY POSITIVE [None]
  - PYREXIA [None]
